FAERS Safety Report 9475942 (Version 1)
Quarter: 2013Q3

REPORT INFORMATION
  Report Type: Report from Study
  Country: CO (occurrence: CO)
  Receive Date: 20130826
  Receipt Date: 20130826
  Transmission Date: 20140515
  Serious: Yes (Death)
  Sender: FDA-Public Use
  Company Number: CO-ROCHE-1264984

PATIENT
  Age: 92 Year
  Sex: Female

DRUGS (1)
  1. MIRCERA [Suspect]
     Indication: NEPHROGENIC ANAEMIA
     Route: 058

REACTIONS (3)
  - Cardio-respiratory arrest [Fatal]
  - Metabolic acidosis [Fatal]
  - Multi-organ failure [Fatal]
